FAERS Safety Report 5475622-X (Version None)
Quarter: 2007Q3

REPORT INFORMATION
  Report Type: 
  Country: None (occurrence: None)
  Receive Date: 20070911
  Receipt Date: 20060725
  Transmission Date: 20080115
  Serious: No
  Sender: FDA-Public Use
  Company Number: 06H-163-0309309-00

PATIENT
  Age: 79 Year
  Sex: Female
  Weight: 103 kg

DRUGS (1)
  1. VANCOMYCIN HCL [Suspect]
     Indication: CATHETER RELATED INFECTION
     Dosage: 500 MG, ONCE, INTRAVENOUS
     Route: 042
     Dates: start: 20060627, end: 20060627

REACTIONS (1)
  - RED MAN SYNDROME [None]
